FAERS Safety Report 20532325 (Version 1)
Quarter: 2022Q1

REPORT INFORMATION
  Report Type: Spontaneous
  Country: JP (occurrence: JP)
  Receive Date: 20220301
  Receipt Date: 20220301
  Transmission Date: 20220423
  Serious: Yes (Life-Threatening, Hospitalization, Other)
  Sender: FDA-Public Use
  Company Number: JP-PFIZER INC-202200268806

PATIENT
  Age: 64 Year
  Sex: Male

DRUGS (3)
  1. VIBRAMYCIN [Suspect]
     Active Substance: DOXYCYCLINE
     Indication: Device related infection
     Dosage: 200 MG, DAILY
     Route: 048
  2. MINOCYCLINE HYDROCHLORIDE [Suspect]
     Active Substance: MINOCYCLINE HYDROCHLORIDE
     Indication: Device related infection
     Dosage: 200 MG, DAILY
     Route: 048
  3. RIFAMPIN [Suspect]
     Active Substance: RIFAMPIN
     Indication: Device related infection
     Dosage: 900 MG, DAILY
     Route: 048

REACTIONS (3)
  - Steatohepatitis [Unknown]
  - Hepatic cirrhosis [Unknown]
  - Hypoalbuminaemia [Unknown]
